FAERS Safety Report 20625748 (Version 2)
Quarter: 2022Q2

REPORT INFORMATION
  Report Type: Spontaneous
  Country: US (occurrence: None)
  Receive Date: 20220323
  Receipt Date: 20220405
  Transmission Date: 20220720
  Serious: Yes (Other)
  Sender: FDA-Public Use
  Company Number: US-ROCHE-2905047

PATIENT
  Sex: Male

DRUGS (15)
  1. ERIVEDGE [Suspect]
     Active Substance: VISMODEGIB
     Indication: Basal cell carcinoma
     Route: 048
     Dates: start: 202107
  2. AMLODIPINE [Concomitant]
     Active Substance: AMLODIPINE BESYLATE
  3. ATORVASTATIN [Concomitant]
     Active Substance: ATORVASTATIN
  4. CINNAMON\HERBALS [Concomitant]
     Active Substance: CINNAMON\HERBALS
  5. CLOVE OIL [Concomitant]
     Active Substance: CLOVE OIL
  6. FINASTERIDE [Concomitant]
     Active Substance: FINASTERIDE
  7. FISH OIL [Concomitant]
     Active Substance: FISH OIL
  8. LABETALOL [Concomitant]
     Active Substance: LABETALOL\LABETALOL HYDROCHLORIDE
  9. LEVOTHYROXINE [Concomitant]
     Active Substance: LEVOTHYROXINE
  10. LISINOPRIL [Concomitant]
     Active Substance: LISINOPRIL
  11. ROSEMARY OIL [Concomitant]
     Active Substance: ROSEMARY OIL
  12. TANSULOSINA [Concomitant]
  13. TRIAMTERENE [Concomitant]
     Active Substance: TRIAMTERENE
  14. VITAMIN C [Concomitant]
     Active Substance: ASCORBIC ACID
  15. METAMUCIL [Concomitant]
     Active Substance: PLANTAGO SEED

REACTIONS (3)
  - Taste disorder [Not Recovered/Not Resolved]
  - Fatigue [Not Recovered/Not Resolved]
  - Prostate cancer [Unknown]
